FAERS Safety Report 19649106 (Version 1)
Quarter: 2021Q3

REPORT INFORMATION
  Report Type: Spontaneous
  Country: US (occurrence: US)
  Receive Date: 20210803
  Receipt Date: 20210803
  Transmission Date: 20211014
  Serious: No
  Sender: FDA-Public Use
  Company Number: US-DEXPHARM-20210421

PATIENT
  Age: 14 Month
  Sex: Female
  Weight: 9.52 kg

DRUGS (3)
  1. LANSOPRAZOLE 15 MG ORODISPERSIBLE TABLET [Suspect]
     Active Substance: LANSOPRAZOLE
     Indication: GASTROOESOPHAGEAL REFLUX DISEASE
     Dosage: 1/2 LANSOPRAZOLE 15 MG ORODISPERSIBLE STRAWBERRY TABLET TWICE DAILY
     Route: 050
     Dates: start: 202007, end: 20210322
  2. LANSOPRAZOLE 15 MG ORODISPERSIBLE TABLET [Suspect]
     Active Substance: LANSOPRAZOLE
     Indication: GASTROOESOPHAGEAL REFLUX DISEASE
     Dosage: 1/2 LANSOPRAZOLE 15 MG ORODISPERSIBLE STRAWBERRY TABLET TWICE DAILY
     Route: 050
     Dates: start: 20210323
  3. LANSOPRAZOLE 15 MG ORODISPERSIBLE TABLET [Suspect]
     Active Substance: LANSOPRAZOLE
     Indication: GASTROOESOPHAGEAL REFLUX DISEASE
     Dosage: 1/4 TABLET
     Route: 050
     Dates: start: 20210325, end: 20210325

REACTIONS (10)
  - Cough [Not Recovered/Not Resolved]
  - Incorrect product administration duration [Not Recovered/Not Resolved]
  - Product administered to patient of inappropriate age [Not Recovered/Not Resolved]
  - Increased viscosity of upper respiratory secretion [Not Recovered/Not Resolved]
  - Drug ineffective for unapproved indication [Unknown]
  - Condition aggravated [Not Recovered/Not Resolved]
  - Sneezing [Not Recovered/Not Resolved]
  - Dyspnoea [Not Recovered/Not Resolved]
  - Vomiting [Not Recovered/Not Resolved]
  - Wrong technique in product usage process [Not Recovered/Not Resolved]

NARRATIVE: CASE EVENT DATE: 202007
